FAERS Safety Report 7008532-7 (Version None)
Quarter: 2010Q3

REPORT INFORMATION
  Report Type: 
  Country: None (occurrence: None)
  Receive Date: 20100922
  Receipt Date: 20100910
  Transmission Date: 20110219
  Serious: Yes (Other)
  Sender: FDA-Public Use
  Company Number: US-PFIZER INC-2010119507

PATIENT
  Sex: Female
  Weight: 75.283 kg

DRUGS (3)
  1. AZITHROMYCIN [Suspect]
  2. IBUPROFEN [Suspect]
  3. AUGMENTIN '125' [Suspect]

REACTIONS (1)
  - HYPERSENSITIVITY [None]
